FAERS Safety Report 8153063-4 (Version None)
Quarter: 2012Q1

REPORT INFORMATION
  Report Type: 
  Country: None (occurrence: None)
  Receive Date: 20120221
  Receipt Date: 20120206
  Transmission Date: 20120608
  Serious: Yes (Life-Threatening, Hospitalization, Other)
  Sender: FDA-Public Use
  Company Number: GB-PFIZER INC-2009314848

PATIENT
  Age: 49 Year
  Sex: Female
  Weight: 89 kg

DRUGS (12)
  1. PAROXETINE [Suspect]
     Indication: DEPRESSION
     Dosage: 30 MG, 1X/DAY
  2. ENFLURANE [Concomitant]
     Dosage: UNK
     Route: 055
  3. INDOMETHACIN [Concomitant]
     Indication: ARTHRALGIA
     Dosage: UNK
     Route: 065
  4. NITROUS OXIDE [Concomitant]
     Dosage: UNK
     Route: 055
  5. PROPOFOL [Concomitant]
     Indication: INDUCTION OF ANAESTHESIA
     Dosage: UNK
     Route: 065
  6. ONDANSETRON [Interacting]
     Dosage: 4 MG, 1 TOTAL
  7. ATRACURIUM [Concomitant]
     Indication: ANAESTHESIA
     Dosage: UNK
     Route: 065
  8. MORPHINE [Concomitant]
     Indication: POSTOPERATIVE ANALGESIA
     Dosage: 7.5 MG/DAY
     Route: 030
  9. METHYLTHIONINIUM CHLORIDE [Interacting]
     Indication: PARATHYROIDECTOMY
     Dosage: UNK
  10. DICLOFENAC [Concomitant]
     Indication: ARTHRALGIA
     Dosage: 100 MG/DAY
     Route: 054
  11. MORPHINE [Concomitant]
     Dosage: 8 MG, UNK
     Route: 030
  12. OXYGEN [Concomitant]
     Dosage: UNK
     Route: 055

REACTIONS (20)
  - OCULOGYRIC CRISIS [None]
  - DYSKINESIA [None]
  - TOXICITY TO VARIOUS AGENTS [None]
  - MENTAL STATUS CHANGES POSTOPERATIVE [None]
  - GAZE PALSY [None]
  - PYREXIA [None]
  - DELIRIUM [None]
  - DEPRESSED LEVEL OF CONSCIOUSNESS [None]
  - AGITATION [None]
  - CONFUSIONAL STATE [None]
  - PCO2 INCREASED [None]
  - WITHDRAWAL SYNDROME [None]
  - DRUG INTERACTION [None]
  - SEROTONIN SYNDROME [None]
  - HEART RATE INCREASED [None]
  - MYDRIASIS [None]
  - BLOOD PRESSURE SYSTOLIC INCREASED [None]
  - ALKALOSIS [None]
  - DISORIENTATION [None]
  - NEUROLEPTIC MALIGNANT SYNDROME [None]
